FAERS Safety Report 8941822 (Version 2)
Quarter: 2012Q4

REPORT INFORMATION
  Report Type: 
  Country: US (occurrence: US)
  Receive Date: 20121203
  Receipt Date: 20121220
  Transmission Date: 20130627
  Serious: Yes (Hospitalization)
  Sender: FDA-Public Use
  Company Number: US-GILEAD-2012-0065384

PATIENT
  Age: 71 Year
  Sex: Male

DRUGS (2)
  1. LETAIRIS [Suspect]
     Indication: PORTOPULMONARY HYPERTENSION
     Dosage: 10 mg, QD
     Route: 048
     Dates: start: 20090404
  2. LETAIRIS [Suspect]
     Indication: CARDIAC FAILURE CONGESTIVE

REACTIONS (1)
  - Dyspnoea [Recovered/Resolved]
